FAERS Safety Report 12225388 (Version 1)
Quarter: 2016Q1

REPORT INFORMATION
  Report Type: Spontaneous
  Country: US (occurrence: None)
  Receive Date: 20160330
  Receipt Date: 20160330
  Transmission Date: 20160526
  Serious: Yes (Disabling)
  Sender: FDA-Public Use
  Company Number: None

PATIENT
  Age: 56 Year
  Sex: Male
  Weight: 115.67 kg

DRUGS (12)
  1. FENTANYL TRANSDERMAL SYSTEM [Suspect]
     Active Substance: FENTANYL
     Indication: ARTHROPATHY
     Dosage: 2 BOX 5 PER BOX  1-EVERY 72 HR  SKIN (PATCH)?
     Route: 062
     Dates: start: 20160121
  2. OXCODONE [Concomitant]
  3. FLOMAX [Concomitant]
     Active Substance: TAMSULOSIN HYDROCHLORIDE
  4. CATHADERS [Concomitant]
  5. FENTANYL TRANSDERMAL SYSTEM [Suspect]
     Active Substance: FENTANYL
     Indication: NECK SURGERY
     Dosage: 2 BOX 5 PER BOX  1-EVERY 72 HR  SKIN (PATCH)?
     Route: 062
     Dates: start: 20160121
  6. SUPOSITORIES [Concomitant]
  7. NEUROTIN [Concomitant]
     Active Substance: GABAPENTIN
  8. FENTANYL TRANSDERMAL SYSTEM [Suspect]
     Active Substance: FENTANYL
     Indication: NERVOUS SYSTEM DISORDER
     Dosage: 2 BOX 5 PER BOX  1-EVERY 72 HR  SKIN (PATCH)?
     Route: 062
     Dates: start: 20160121
  9. XANAX [Concomitant]
     Active Substance: ALPRAZOLAM
  10. MIRILAX [Concomitant]
  11. EFFIXOR [Concomitant]
  12. FENTANYL TRANSDERMAL SYSTEM [Suspect]
     Active Substance: FENTANYL
     Indication: BACK DISORDER
     Dosage: 2 BOX 5 PER BOX  1-EVERY 72 HR  SKIN (PATCH)?
     Route: 062
     Dates: start: 20160121

REACTIONS (2)
  - Drug effect incomplete [None]
  - Product substitution issue [None]
